FAERS Safety Report 8255242-4 (Version None)
Quarter: 2012Q1

REPORT INFORMATION
  Report Type: 
  Country: None (occurrence: None)
  Receive Date: 20120329
  Receipt Date: 20120319
  Transmission Date: 20120608
  Serious: Yes (Death, Hospitalization)
  Sender: FDA-Public Use
  Company Number: B0546846A

PATIENT
  Age: 5 Year
  Sex: Male

DRUGS (7)
  1. ZOFRAN [Suspect]
     Indication: VOMITING
     Dosage: SUBLINGUAL
     Route: 060
     Dates: start: 20081102
  2. ACETAMINOPHEN [Concomitant]
  3. IBUPROFEN [Concomitant]
  4. LORATADINE [Concomitant]
  5. LORATADINE [Concomitant]
  6. CEFTRIAXONE [Concomitant]
  7. AMOXICILLIN AND CLAVULANATE POTASSIUM [Concomitant]

REACTIONS (13)
  - HYPERTHERMIA MALIGNANT [None]
  - ENTEROVIRUS TEST POSITIVE [None]
  - HEPATIC VEIN THROMBOSIS [None]
  - SEROTONIN SYNDROME [None]
  - BLOOD BICARBONATE DECREASED [None]
  - VENTRICULAR TACHYCARDIA [None]
  - MYOPATHY [None]
  - CARDIAC ARREST [None]
  - BRONCHOPNEUMONIA [None]
  - ACIDOSIS [None]
  - MUSCLE RIGIDITY [None]
  - BLOOD POTASSIUM INCREASED [None]
  - INJURY [None]
